FAERS Safety Report 6372473-9 (Version None)
Quarter: 2009Q3

REPORT INFORMATION
  Report Type: 
  Country: None (occurrence: None)
  Receive Date: 20090924
  Receipt Date: 20080731
  Transmission Date: 20100115
  Serious: No
  Sender: FDA-Public Use
  Company Number: US-ASTRAZENECA-2008UW16042

PATIENT

DRUGS (5)
  1. SEROQUEL [Suspect]
     Route: 048
  2. GEODON [Concomitant]
  3. ZYPREXA [Concomitant]
  4. DEPAKOTE [Concomitant]
  5. EFFEXOR [Concomitant]

REACTIONS (1)
  - BLOOD TEST ABNORMAL [None]
